FAERS Safety Report 8623235-0 (Version None)
Quarter: 2012Q3

REPORT INFORMATION
  Report Type: 
  Country: None (occurrence: None)
  Receive Date: 20120827
  Receipt Date: 20120817
  Transmission Date: 20120928
  Serious: No
  Sender: FDA-Public Use
  Company Number: US-US-EMD SERONO, INC.-7154396

PATIENT
  Sex: Female
  Weight: 88 kg

DRUGS (1)
  1. REBIF [Suspect]
     Indication: MULTIPLE SCLEROSIS
     Route: 058
     Dates: start: 20111217

REACTIONS (6)
  - AXILLARY MASS [None]
  - INJECTION SITE MASS [None]
  - FALL [None]
  - PAIN IN EXTREMITY [None]
  - LIGAMENT SPRAIN [None]
  - INJECTION SITE DISCOLOURATION [None]
